FAERS Safety Report 4335712-1 (Version None)
Quarter: 2004Q2

REPORT INFORMATION
  Report Type: 
  Country: None (occurrence: None)
  Receive Date: 20040409
  Receipt Date: 20040330
  Transmission Date: 20050107
  Serious: Yes (Other)
  Sender: FDA-Public Use
  Company Number: JP-GLAXOSMITHKLINE-B0329370A

PATIENT
  Age: 45 Year
  Sex: Male

DRUGS (1)
  1. ALKERAN [Suspect]
     Indication: STEM CELL TRANSPLANT
     Dosage: 150MG PER DAY
     Route: 042
     Dates: start: 20040308, end: 20040309

REACTIONS (1)
  - ATRIAL FIBRILLATION [None]
